FAERS Safety Report 12711217 (Version 2)
Quarter: 2016Q4

REPORT INFORMATION
  Report Type: Spontaneous
  Country: FR (occurrence: FR)
  Receive Date: 20160902
  Receipt Date: 20161005
  Transmission Date: 20170207
  Serious: Yes (Hospitalization)
  Sender: FDA-Public Use
  Company Number: FR-ACCORD-043590

PATIENT
  Age: 44 Year
  Sex: Female

DRUGS (6)
  1. FLUOROURACILE ACCORD [Suspect]
     Active Substance: FLUOROURACIL
     Indication: BREAST CANCER
     Dosage: 1 GRAM ONCE
     Route: 042
     Dates: start: 20160719
  2. EPIRUBICINE MEDAC [Suspect]
     Active Substance: EPIRUBICIN HYDROCHLORIDE
     Indication: BREAST CANCER
     Dosage: 200 MG ONCE
     Route: 042
     Dates: start: 20160719
  3. CORTANCYL [Suspect]
     Active Substance: PREDNISONE
     Indication: PROPHYLAXIS OF NAUSEA AND VOMITING
     Dosage: 60 MG ONCE
     Route: 048
     Dates: start: 20160719
  4. ENDOXAN [Suspect]
     Active Substance: CYCLOPHOSPHAMIDE
     Indication: BREAST CANCER
     Dosage: 1 G ONCE
     Route: 042
     Dates: start: 20160719
  5. EMEND [Suspect]
     Active Substance: APREPITANT
     Indication: PROPHYLAXIS OF NAUSEA AND VOMITING
     Dosage: 125 MG ONCE
     Route: 048
     Dates: start: 20160719
  6. ONDANSETRON EG [Suspect]
     Active Substance: ONDANSETRON HYDROCHLORIDE
     Indication: PROPHYLAXIS OF NAUSEA AND VOMITING
     Dosage: 8 MG ONCE
     Route: 048
     Dates: start: 20160719

REACTIONS (3)
  - Generalised tonic-clonic seizure [Recovered/Resolved]
  - Leukostasis syndrome [Unknown]
  - Hyperglycaemia [Unknown]

NARRATIVE: CASE EVENT DATE: 20160719
